FAERS Safety Report 9159327 (Version 1)
Quarter: 2013Q1

REPORT INFORMATION
  Report Type: Spontaneous
  Country: US (occurrence: US)
  Receive Date: 20130313
  Receipt Date: 20130313
  Transmission Date: 20140127
  Serious: No
  Sender: FDA-Public Use
  Company Number: US-MYLANLABS-2012S1010531

PATIENT
  Age: 55 Year
  Sex: Male

DRUGS (2)
  1. DIGOXIN [Suspect]
     Dosage: 0.25MG DAILY
     Route: 065
  2. ASPIRIN [Concomitant]
     Route: 065

REACTIONS (1)
  - Fatigue [Recovered/Resolved]
